FAERS Safety Report 10088835 (Version 2)
Quarter: 2014Q2

REPORT INFORMATION
  Report Type: Report from Study
  Country: CA (occurrence: CA)
  Receive Date: 20140421
  Receipt Date: 20140422
  Transmission Date: 20141212
  Serious: Yes (Other)
  Sender: FDA-Public Use
  Company Number: CA-JNJFOC-20140409498

PATIENT
  Age: 62 Year
  Sex: Male
  Weight: 98.6 kg

DRUGS (4)
  1. REMICADE [Suspect]
     Indication: CROHN^S DISEASE
     Route: 042
     Dates: start: 20140314
  2. REMICADE [Suspect]
     Indication: CROHN^S DISEASE
     Route: 042
     Dates: start: 20140306
  3. REMICADE [Suspect]
     Indication: RHEUMATOID ARTHRITIS
     Route: 042
     Dates: start: 20140314
  4. REMICADE [Suspect]
     Indication: RHEUMATOID ARTHRITIS
     Route: 042
     Dates: start: 20140306

REACTIONS (8)
  - Syncope [Unknown]
  - Head injury [Unknown]
  - Peripheral swelling [Unknown]
  - Infusion related reaction [Unknown]
  - Hypotension [Not Recovered/Not Resolved]
  - Pallor [Unknown]
  - Skin abrasion [Unknown]
  - Swelling [Unknown]
